FAERS Safety Report 11489408 (Version 1)
Quarter: 2015Q3

REPORT INFORMATION
  Report Type: Spontaneous
  Country: US (occurrence: US)
  Receive Date: 20150910
  Receipt Date: 20150910
  Transmission Date: 20151125
  Serious: No
  Sender: FDA-Public Use
  Company Number: US-ROCHE-1510451

PATIENT
  Age: 57 Year
  Sex: Male

DRUGS (3)
  1. SOVALDI [Suspect]
     Active Substance: SOFOSBUVIR
     Indication: HEPATITIS C
     Route: 065
  2. PEGASYS [Suspect]
     Active Substance: PEGINTERFERON ALFA-2A
     Indication: HEPATITIS C
     Dosage: FORM STRENGTH: 180 MCG /0.5 ML
     Route: 058
  3. RIBASPHERE RIBAPAK [Suspect]
     Active Substance: RIBAVIRIN
     Indication: HEPATITIS C
     Route: 065

REACTIONS (8)
  - Fatigue [Unknown]
  - Headache [Unknown]
  - Injection site pruritus [Unknown]
  - Rash [Unknown]
  - Injection site pain [Unknown]
  - Abdominal discomfort [Unknown]
  - Insomnia [Unknown]
  - Weight decreased [Unknown]
